FAERS Safety Report 9028227 (Version 2)
Quarter: 2013Q1

REPORT INFORMATION
  Report Type: Spontaneous
  Country: US (occurrence: US)
  Receive Date: 20130124
  Receipt Date: 20130306
  Transmission Date: 20140127
  Serious: No
  Sender: FDA-Public Use
  Company Number: US-PFIZER INC-2013029985

PATIENT
  Age: 56 Year
  Sex: Female
  Weight: 49.89 kg

DRUGS (1)
  1. CHANTIX [Suspect]
     Indication: SMOKING CESSATION THERAPY
     Dosage: 0.5MG DAILY
     Dates: start: 20121225, end: 201301

REACTIONS (2)
  - Withdrawal syndrome [Unknown]
  - Agitation [Not Recovered/Not Resolved]
